FAERS Safety Report 21043044 (Version 1)
Quarter: 2022Q3

REPORT INFORMATION
  Report Type: Spontaneous
  Country: US (occurrence: None)
  Receive Date: 20220702
  Receipt Date: 20220702
  Transmission Date: 20221027
  Serious: Yes (Hospitalization)
  Sender: FDA-Public Use
  Company Number: None

PATIENT
  Age: 36 Year
  Sex: Male

DRUGS (1)
  1. REVLIMID [Suspect]
     Active Substance: LENALIDOMIDE
     Indication: Monoclonal gammopathy
     Dosage: 25MG QD ORAL
     Route: 048
     Dates: start: 20210624, end: 20220614

REACTIONS (2)
  - Muscular weakness [None]
  - Facial paralysis [None]

NARRATIVE: CASE EVENT DATE: 20220614
